FAERS Safety Report 17974900 (Version 1)
Quarter: 2020Q3

REPORT INFORMATION
  Report Type: Spontaneous
  Country: US (occurrence: US)
  Receive Date: 20200702
  Receipt Date: 20200702
  Transmission Date: 20201103
  Serious: No
  Sender: FDA-Public Use
  Company Number: US-ASTRAZENECA-2020SE82787

PATIENT
  Age: 78 Year
  Sex: Female

DRUGS (1)
  1. NEXIUM 24HR [Suspect]
     Active Substance: ESOMEPRAZOLE MAGNESIUM
     Dosage: 2.0DF UNKNOWN
     Route: 048

REACTIONS (3)
  - Nausea [Unknown]
  - Diarrhoea [Unknown]
  - Wrong dose [Unknown]

NARRATIVE: CASE EVENT DATE: 20200625
